FAERS Safety Report 5180920-3 (Version None)
Quarter: 2006Q4

REPORT INFORMATION
  Report Type: 
  Country: None (occurrence: None)
  Receive Date: 20061218
  Receipt Date: 20061218
  Transmission Date: 20070319
  Serious: Yes (Life-Threatening, Hospitalization)
  Sender: FDA-Public Use
  Company Number: None

PATIENT
  Age: 73 Year
  Sex: Female
  Weight: 79 kg

DRUGS (6)
  1. LISINOPRIL [Suspect]
     Indication: HYPERTENSION
     Dosage: 10MG DAILY PO
     Route: 048
     Dates: start: 20060624, end: 20060723
  2. CARVEDILOL [Concomitant]
  3. FUROSEMIDE [Concomitant]
  4. WARFARIN SODIUM [Concomitant]
  5. DIGOXIN [Concomitant]
  6. CLONIDINE [Concomitant]

REACTIONS (4)
  - BRADYCARDIA [None]
  - HYPOAESTHESIA FACIAL [None]
  - PRURITUS [None]
  - SWELLING [None]
